FAERS Safety Report 12544996 (Version 1)
Quarter: 2016Q3

REPORT INFORMATION
  Report Type: Spontaneous
  Country: CN (occurrence: CN)
  Receive Date: 20160711
  Receipt Date: 20160711
  Transmission Date: 20161109
  Serious: Yes (Death, Hospitalization)
  Sender: FDA-Public Use
  Company Number: CN-BAYER-2016-129431

PATIENT
  Age: 40 Year
  Sex: Male

DRUGS (5)
  1. ACETYLSALICYLIC ACID (} 100 MG) [Interacting]
     Active Substance: ASPIRIN
     Dosage: UNK
  2. CLOPIDOGREL [Interacting]
     Active Substance: CLOPIDOGREL BISULFATE
     Dosage: 600 MG, UNK
  3. TIROFIBAN [Interacting]
     Active Substance: TIROFIBAN
     Dosage: 0.1 LG/KG/MIN AFTER PCI
     Route: 042
  4. CLOPIDOGREL [Interacting]
     Active Substance: CLOPIDOGREL BISULFATE
     Dosage: UNK
  5. ACETYLSALICYLIC ACID (} 100 MG) [Suspect]
     Active Substance: ASPIRIN
     Dosage: 300 MG, UNK

REACTIONS (8)
  - Labelled drug-drug interaction medication error [None]
  - Myocardial haemorrhage [None]
  - Myocardial rupture [None]
  - Pericardial haemorrhage [None]
  - Intrapericardial thrombosis [None]
  - Cardiac tamponade [None]
  - Drug administration error [None]
  - Cerebral disorder [Fatal]
